FAERS Safety Report 7531708-7 (Version None)
Quarter: 2011Q2

REPORT INFORMATION
  Report Type: 
  Country: None (occurrence: None)
  Receive Date: 20110608
  Receipt Date: 20110531
  Transmission Date: 20111010
  Serious: Yes (Other)
  Sender: FDA-Public Use
  Company Number: FR-ROCHE-775545

PATIENT
  Sex: Female
  Weight: 61.5 kg

DRUGS (5)
  1. ASPIRIN [Concomitant]
     Dosage: KARDEGIC 75
     Route: 048
     Dates: start: 20091022
  2. REPAGLINIDE [Concomitant]
     Dosage: NOVONORM 1 MG
     Route: 048
     Dates: start: 20101022
  3. ATENOLOL [Concomitant]
     Indication: HYPERTENSION
     Route: 048
     Dates: start: 20101109
  4. MIRCERA [Suspect]
     Route: 042
     Dates: start: 20110226, end: 20110424
  5. EZETIMIBE [Concomitant]
     Indication: PROPHYLAXIS
     Route: 048
     Dates: start: 20091022

REACTIONS (5)
  - CHEST PAIN [None]
  - HYPERSENSITIVITY [None]
  - VOMITING [None]
  - HYPOTENSION [None]
  - BRONCHOSPASM [None]
